FAERS Safety Report 4543022-2 (Version None)
Quarter: 2005Q1

REPORT INFORMATION
  Report Type: 
  Country: None (occurrence: None)
  Receive Date: 20050103
  Receipt Date: 20041222
  Transmission Date: 20050727
  Serious: Yes (Other)
  Sender: FDA-Public Use
  Company Number: US-JNJFOC-20040900450

PATIENT
  Sex: Female
  Weight: 85.28 kg

DRUGS (24)
  1. REMICADE [Suspect]
     Dosage: 3 OR 4 VIALS
     Route: 042
  2. REMICADE [Suspect]
     Dosage: 3 OR 4 VIALS
     Route: 042
  3. REMICADE [Suspect]
     Route: 042
  4. REMICADE [Suspect]
     Route: 042
  5. REMICADE [Suspect]
     Route: 042
  6. REMICADE [Suspect]
     Route: 042
  7. REMICADE [Suspect]
     Route: 042
  8. REMICADE [Suspect]
     Route: 042
  9. REMICADE [Suspect]
     Dosage: DOSE INCREASED TO FOUR VIALS
     Route: 042
  10. REMICADE [Suspect]
     Route: 042
  11. REMICADE [Suspect]
     Dosage: DOSE = 3 VIALS
     Route: 042
  12. REMICADE [Suspect]
     Dosage: DOSE =  3 VIALS
     Route: 042
  13. REMICADE [Suspect]
     Dosage: DOSE = 3 VIALS
     Route: 042
  14. REMICADE [Suspect]
     Indication: RHEUMATOID ARTHRITIS
     Dosage: 3 OR 4 VIALS
     Route: 042
  15. ARAVA [Concomitant]
     Dosage: DISCONTINUED AFTER INFUSION REACTIONS
  16. PAXIL [Concomitant]
  17. FOLIC ACID [Concomitant]
  18. VITAMIN E [Concomitant]
  19. CENTRUM [Concomitant]
  20. CENTRUM [Concomitant]
  21. ADVAIR DISKUS 100/50 [Concomitant]
  22. ADVAIR DISKUS 100/50 [Concomitant]
  23. METHOTREXATE [Concomitant]
     Dosage: STARTED AFTER LEFLUNOMIDE WAS DISCONTINUED.
  24. EYE DROPS [Concomitant]

REACTIONS (13)
  - ASTHMA [None]
  - BLOOD IMMUNOGLOBULIN G INCREASED [None]
  - BLOOD TEST ABNORMAL [None]
  - BRONCHIECTASIS [None]
  - CHOKING [None]
  - CYST [None]
  - DYSPNOEA [None]
  - ERYTHEMA [None]
  - FLUSHING [None]
  - INFUSION RELATED REACTION [None]
  - LOWER RESPIRATORY TRACT INFECTION [None]
  - LUNG NEOPLASM [None]
  - RHEUMATOID ARTHRITIS [None]
